FAERS Safety Report 20601855 (Version 1)
Quarter: 2022Q1

REPORT INFORMATION
  Report Type: Spontaneous
  Country: GB (occurrence: GB)
  Receive Date: 20220316
  Receipt Date: 20220316
  Transmission Date: 20220423
  Serious: Yes (Other)
  Sender: FDA-Public Use
  Company Number: GB-MHRA-MED-202203042140570370-UUENV

PATIENT

DRUGS (2)
  1. ATORVASTATIN [Suspect]
     Active Substance: ATORVASTATIN
     Indication: Myocardial infarction
     Dosage: 80MG ONCE A DAY
     Route: 065
     Dates: start: 20210808, end: 20220222
  2. DAPAGLIFLOZIN [Suspect]
     Active Substance: DAPAGLIFLOZIN
     Indication: Myocardial infarction
     Dosage: 10MG ONCE A DAY
     Route: 065
     Dates: end: 20220222

REACTIONS (1)
  - Balanitis candida [Recovered/Resolved]

NARRATIVE: CASE EVENT DATE: 20220115
